FAERS Safety Report 5332430-8 (Version None)
Quarter: 2007Q2

REPORT INFORMATION
  Report Type: 
  Country: None (occurrence: None)
  Receive Date: 20070523
  Receipt Date: 20070514
  Transmission Date: 20071010
  Serious: Yes (Other)
  Sender: FDA-Public Use
  Company Number: US-JNJFOC-20070503965

PATIENT
  Sex: Male
  Weight: 88.45 kg

DRUGS (3)
  1. DURAGESIC-100 [Suspect]
     Indication: PAIN
     Route: 062
  2. SKELAXIN [Concomitant]
     Indication: MUSCLE RELAXANT THERAPY
     Route: 048
  3. ACIPHEX [Concomitant]
     Route: 048

REACTIONS (4)
  - CONSTIPATION [None]
  - DEPRESSION [None]
  - PAIN [None]
  - POST-TRAUMATIC STRESS DISORDER [None]
